FAERS Safety Report 20597021 (Version 1)
Quarter: 2022Q1

REPORT INFORMATION
  Report Type: Other
  Country: US (occurrence: None)
  Receive Date: 20220315
  Receipt Date: 20220315
  Transmission Date: 20220423
  Serious: No
  Sender: FDA-Public Use
  Company Number: US-ROCHE-3044312

PATIENT
  Sex: Female

DRUGS (1)
  1. OCREVUS [Suspect]
     Active Substance: OCRELIZUMAB
     Indication: Multiple sclerosis
     Dosage: 300MG /10 ML IV
     Route: 042

REACTIONS (21)
  - Hypoaesthesia [Unknown]
  - Limb discomfort [Unknown]
  - Burning sensation [Unknown]
  - Muscle spasms [Unknown]
  - Urinary incontinence [Unknown]
  - Anaemia [Unknown]
  - Coronary artery disease [Unknown]
  - Hypertension [Unknown]
  - Blood cholesterol increased [Unknown]
  - Vitamin D deficiency [Unknown]
  - COVID-19 [Unknown]
  - Disturbance in attention [Unknown]
  - Anxiety [Unknown]
  - Eosinophil count increased [Unknown]
  - Red blood cell count decreased [Unknown]
  - Blood potassium decreased [Unknown]
  - Blood alkaline phosphatase increased [Unknown]
  - Mean cell volume decreased [Unknown]
  - Lymphocyte count decreased [Unknown]
  - Alanine aminotransferase increased [Unknown]
  - Glomerular filtration rate decreased [Unknown]
